FAERS Safety Report 4690453-6 (Version None)
Quarter: 2005Q2

REPORT INFORMATION
  Report Type: 
  Country: None (occurrence: None)
  Receive Date: 20050615
  Receipt Date: 20050524
  Transmission Date: 20051028
  Serious: Yes (Hospitalization)
  Sender: FDA-Public Use
  Company Number: 2005UW08051

PATIENT
  Age: 60 Year
  Sex: Male
  Weight: 123.9 kg

DRUGS (10)
  1. IRESSA [Suspect]
     Indication: GLIOBLASTOMA MULTIFORME
     Route: 048
     Dates: start: 20050126
  2. RAPAMYCIN [Suspect]
     Indication: GLIOBLASTOMA MULTIFORME
     Route: 048
     Dates: start: 20050126
  3. AVALIDE [Concomitant]
     Route: 048
  4. DECADRON [Concomitant]
     Route: 048
  5. KEPPRA [Concomitant]
     Route: 048
  6. PEPCID [Concomitant]
     Route: 048
  7. LOVENOX [Concomitant]
     Route: 058
  8. MAGIC MOUTHWASH [Concomitant]
  9. PHENERGAN [Concomitant]
     Route: 048
  10. ZOFRAN [Concomitant]
     Route: 048

REACTIONS (10)
  - ANOREXIA [None]
  - ASTHENIA [None]
  - BLOOD PRESSURE INCREASED [None]
  - DECREASED ACTIVITY [None]
  - DEHYDRATION [None]
  - DEPRESSED LEVEL OF CONSCIOUSNESS [None]
  - FALL [None]
  - HEART RATE INCREASED [None]
  - NAUSEA [None]
  - NERVOUS SYSTEM DISORDER [None]
